FAERS Safety Report 5567694-9 (Version None)
Quarter: 2007Q4

REPORT INFORMATION
  Report Type: 
  Country: None (occurrence: None)
  Receive Date: 20071217
  Receipt Date: 20071211
  Transmission Date: 20080405
  Serious: Yes (Other)
  Sender: FDA-Public Use
  Company Number: 2007337522

PATIENT
  Sex: Female
  Weight: 65.7716 kg

DRUGS (7)
  1. ROLAIDS SOFT CHEWS WILD CHERRY (CALCIUM CARBONATE) [Suspect]
     Indication: DYSPEPSIA
     Dosage: 1 TABLET 2 TIMES, ORAL
     Route: 048
     Dates: start: 20071204, end: 20071211
  2. VYTORIN [Concomitant]
  3. AVALIDE [Concomitant]
  4. METOPROLOL TARTRATE [Concomitant]
  5. INSULIN HUMULIN 50/50 (INSULIN HUMAN, INSULIN HUMAN INJECTION, ISOPHAN [Concomitant]
  6. HUMALOG [Concomitant]
  7. LEXAPRO [Concomitant]

REACTIONS (1)
  - BLOOD GLUCOSE INCREASED [None]
